FAERS Safety Report 24196761 (Version 1)
Quarter: 2024Q3

REPORT INFORMATION
  Report Type: Report from Study
  Country: CO (occurrence: CO)
  Receive Date: 20240810
  Receipt Date: 20240810
  Transmission Date: 20241017
  Serious: Yes (Hospitalization)
  Sender: ABBVIE
  Company Number: CO-ABBVIE-5867659

PATIENT
  Sex: Female
  Weight: 55 kg

DRUGS (5)
  1. BOTOX [Suspect]
     Active Substance: ONABOTULINUMTOXINA
     Indication: Dystonia
     Dosage: TIME INTERVAL: AS NECESSARY: FREQUENCY EVERY FOUR MONTH?FORM STRENGTH: 100 UNIT
     Route: 030
     Dates: start: 20220920, end: 20220920
  2. BOTOX [Suspect]
     Active Substance: ONABOTULINUMTOXINA
     Indication: Dystonia
     Dosage: TIME INTERVAL: AS NECESSARY: FREQUENCY EVERY FOUR MONTH?FORM STRENGTH: 100 UNIT
     Route: 030
     Dates: start: 20240226, end: 20240226
  3. CARVEDILOL [Concomitant]
     Active Substance: CARVEDILOL
     Indication: Cardiac disorder
     Dosage: FORM STRENGTH: 25 MILLIGRAM
     Route: 048
     Dates: start: 2014
  4. ZOPICLONE [Concomitant]
     Active Substance: ZOPICLONE
     Indication: Sleep disorder
     Dosage: 8MG/4MG?FORM STRENGTH: 8 MILLIGRAM
     Route: 048
     Dates: start: 2014
  5. VALSARTAN [Concomitant]
     Active Substance: VALSARTAN
     Indication: Cardiac disorder
     Dosage: FORM STRENGTH: 160 MILLIGRAM
     Route: 048
     Dates: start: 2014

REACTIONS (8)
  - Corneal disorder [Recovering/Resolving]
  - Injury [Not Recovered/Not Resolved]
  - Fall [Not Recovered/Not Resolved]
  - Oromandibular dystonia [Not Recovered/Not Resolved]
  - Contusion [Not Recovered/Not Resolved]
  - Headache [Not Recovered/Not Resolved]
  - Unevaluable event [Recovered/Resolved]
  - Skin discolouration [Not Recovered/Not Resolved]

NARRATIVE: CASE EVENT DATE: 20240101
